FAERS Safety Report 26081150 (Version 1)
Quarter: 2025Q4

REPORT INFORMATION
  Report Type: Report from Study
  Country: US (occurrence: US)
  Receive Date: 20251124
  Receipt Date: 20251124
  Transmission Date: 20260117
  Serious: Yes (Hospitalization, Other)
  Sender: BOEHRINGER INGELHEIM
  Company Number: US-BoehringerIngelheim-2024-BI-043008

PATIENT
  Age: 59 Year
  Sex: Female
  Weight: 54.9 kg

DRUGS (33)
  1. OFEV [Suspect]
     Active Substance: NINTEDANIB
     Indication: Interstitial lung disease
     Dates: start: 20240716, end: 20250425
  2. OFEV [Suspect]
     Active Substance: NINTEDANIB
     Indication: Idiopathic pulmonary fibrosis
  3. TYVASO DPI [Suspect]
     Active Substance: TREPROSTINIL
     Indication: Pulmonary arterial hypertension
     Dates: start: 202406, end: 202409
  4. TYVASO DPI [Suspect]
     Active Substance: TREPROSTINIL
     Indication: Interstitial lung disease
     Dates: end: 202504
  5. TEMOVATE [Concomitant]
     Active Substance: CLOBETASOL PROPIONATE
  6. VITAMIN B12 [Concomitant]
     Active Substance: CYANOCOBALAMIN
  7. DENTA 5000 PLUS [Concomitant]
     Active Substance: SODIUM FLUORIDE
  8. JARDIANCE [Concomitant]
     Active Substance: EMPAGLIFLOZIN
  9. MAGNESIUM OXIDE [Concomitant]
     Active Substance: MAGNESIUM OXIDE
  10. MELATONIN [Concomitant]
     Active Substance: MELATONIN
  11. VITAMINS [Concomitant]
     Active Substance: VITAMINS
  12. PROTOPIC [Concomitant]
     Active Substance: TACROLIMUS
  13. LASIX [Concomitant]
     Active Substance: FUROSEMIDE
     Indication: Peripheral swelling
  14. ASPIRIN [Concomitant]
     Active Substance: ASPIRIN
  15. PERIDEX [Concomitant]
     Active Substance: CHLORHEXIDINE GLUCONATE
  16. FLEXERIL [Concomitant]
     Active Substance: CYCLOBENZAPRINE HYDROCHLORIDE
  17. SINEQUAN [Concomitant]
     Active Substance: DOXEPIN HYDROCHLORIDE
  18. ALLEGRA [Concomitant]
     Active Substance: FEXOFENADINE HYDROCHLORIDE
  19. FISH OIL\OMEGA-3 FATTY ACIDS [Concomitant]
     Active Substance: FISH OIL\OMEGA-3 FATTY ACIDS
  20. ASIAN GINSENG [Concomitant]
     Active Substance: ASIAN GINSENG
  21. CELLCEPT [Concomitant]
     Active Substance: MYCOPHENOLATE MOFETIL
  22. PROCARDIA [Concomitant]
     Active Substance: NIFEDIPINE
  23. PRILOSEC [Concomitant]
     Active Substance: OMEPRAZOLE MAGNESIUM
  24. VITAMIN B2 [Concomitant]
     Active Substance: RIBOFLAVIN
  25. ALDACTONE [Concomitant]
     Active Substance: SPIRONOLACTONE
  26. KENALOG [Concomitant]
     Active Substance: TRIAMCINOLONE ACETONIDE
  27. ATORVASTATIN [Concomitant]
     Active Substance: ATORVASTATIN
  28. SYMBICORT [Concomitant]
     Active Substance: BUDESONIDE\FORMOTEROL FUMARATE DIHYDRATE
  29. TERBINAFINE [Concomitant]
     Active Substance: TERBINAFINE
  30. DOXEPIN [Concomitant]
     Active Substance: DOXEPIN
  31. TADALAFIL [Concomitant]
     Active Substance: TADALAFIL
  32. TYLENOL [Concomitant]
     Active Substance: ACETAMINOPHEN
     Indication: Product used for unknown indication
  33. ALBUTEROL SULFATE [Concomitant]
     Active Substance: ALBUTEROL SULFATE
     Indication: Product used for unknown indication

REACTIONS (16)
  - Drug reaction with eosinophilia and systemic symptoms [Unknown]
  - Heart failure with reduced ejection fraction [Unknown]
  - Hypervolaemia [Unknown]
  - Fluid retention [Recovered/Resolved]
  - Dyspnoea exertional [Unknown]
  - Condition aggravated [Unknown]
  - Peripheral swelling [Recovered/Resolved]
  - Cough [Not Recovered/Not Resolved]
  - Throat irritation [Recovered/Resolved]
  - Joint swelling [Recovered/Resolved]
  - Rash [Unknown]
  - Echocardiogram abnormal [Unknown]
  - Product dose omission issue [Unknown]
  - Drug eruption [Unknown]
  - Nasopharyngitis [Unknown]
  - Skin lesion [Unknown]

NARRATIVE: CASE EVENT DATE: 20250423
